FAERS Safety Report 22063532 (Version 3)
Quarter: 2023Q2

REPORT INFORMATION
  Report Type: Spontaneous
  Country: US (occurrence: US)
  Receive Date: 20230306
  Receipt Date: 20230526
  Transmission Date: 20230721
  Serious: No
  Sender: FDA-Public Use
  Company Number: US-JNJFOC-20230302432

PATIENT
  Age: 47 Year
  Sex: Female
  Weight: 118.04 kg

DRUGS (2)
  1. TREMFYA [Suspect]
     Active Substance: GUSELKUMAB
     Indication: Psoriatic arthropathy
     Route: 058
  2. TREMFYA [Suspect]
     Active Substance: GUSELKUMAB
     Route: 058
     Dates: start: 202210

REACTIONS (5)
  - Injection site erythema [Unknown]
  - Therapeutic product effect decreased [Unknown]
  - Feeling hot [Unknown]
  - Chest discomfort [Unknown]
  - Arthralgia [Unknown]
